FAERS Safety Report 23196556 (Version 1)
Quarter: 2023Q4

REPORT INFORMATION
  Report Type: Other
  Country: JP (occurrence: None)
  Receive Date: 20231117
  Receipt Date: 20231117
  Transmission Date: 20240110
  Serious: Yes (Other)
  Sender: FDA-Public Use
  Company Number: JP-ROCHE-3454788

PATIENT

DRUGS (2)
  1. ATEZOLIZUMAB [Suspect]
     Active Substance: ATEZOLIZUMAB
     Indication: Triple negative breast cancer
     Dosage: ON DAYS 1 AND 15
     Route: 042
  2. PACLITAXEL [Suspect]
     Active Substance: PACLITAXEL
     Indication: Triple negative breast cancer
     Dosage: PER SQUARE METER OF BODY-SURFACE AREA, ON DAYS 1, 8, AND 15 OF EVERY 28-DAY CYCLE
     Route: 042

REACTIONS (17)
  - Neutropenia [Unknown]
  - Anaemia [Unknown]
  - Fatigue [Unknown]
  - Diarrhoea [Unknown]
  - Constipation [Unknown]
  - Aspartate aminotransferase increased [Unknown]
  - Alanine aminotransferase increased [Unknown]
  - Platelet count decreased [Unknown]
  - Nausea [Unknown]
  - Vomiting [Unknown]
  - Decreased appetite [Unknown]
  - Stomatitis [Unknown]
  - Myalgia [Unknown]
  - Neuropathy peripheral [Unknown]
  - Rash [Unknown]
  - Hypothyroidism [Unknown]
  - Hyperthyroidism [Unknown]
